FAERS Safety Report 25765181 (Version 2)
Quarter: 2025Q3

REPORT INFORMATION
  Report Type: Spontaneous
  Country: US (occurrence: US)
  Receive Date: 20250905
  Receipt Date: 20250929
  Transmission Date: 20251021
  Serious: Yes (Hospitalization, Other)
  Sender: Navitas Life Sciences Inc
  Company Number: US-ADVAGEN PHARMA LIMITED-ADGN-RB-2025-00083

PATIENT

DRUGS (1)
  1. CLONAZEPAM [Suspect]
     Active Substance: CLONAZEPAM
     Indication: Anxiety
     Route: 065
     Dates: start: 20250803

REACTIONS (6)
  - Syncope [Recovering/Resolving]
  - Withdrawal syndrome [Recovering/Resolving]
  - Dizziness [Recovering/Resolving]
  - Palpitations [Recovering/Resolving]
  - Drug ineffective [Unknown]
  - Drug screen negative [Unknown]
